FAERS Safety Report 4382623-1 (Version None)
Quarter: 2004Q2

REPORT INFORMATION
  Report Type: 
  Country: None (occurrence: None)
  Receive Date: 20040617
  Receipt Date: 20040607
  Transmission Date: 20050107
  Serious: Yes (Hospitalization)
  Sender: FDA-Public Use
  Company Number: S04-FRA-02495-01

PATIENT
  Age: 52 Year
  Sex: Female

DRUGS (2)
  1. CITALOPRAM HYDROBROMIDE [Suspect]
     Dosage: 1 QD PO
     Route: 048
     Dates: start: 20040422, end: 20040430
  2. CLAVUCAR (TICARCILLIN/CLAVULANIC ACID) [Suspect]
     Dosage: 15 G QD IV
     Route: 042
     Dates: start: 20040506, end: 20040521

REACTIONS (5)
  - BLEEDING TIME PROLONGED [None]
  - EPISTAXIS [None]
  - HAEMATURIA [None]
  - POST PROCEDURAL COMPLICATION [None]
  - URINARY INCONTINENCE [None]
